FAERS Safety Report 6251780-4 (Version None)
Quarter: 2009Q2

REPORT INFORMATION
  Report Type: 
  Country: None (occurrence: None)
  Receive Date: 20090630
  Receipt Date: 20090622
  Transmission Date: 20091009
  Serious: Yes (Hospitalization, Other)
  Sender: FDA-Public Use
  Company Number: US-AMGEN-QUU352687

PATIENT
  Sex: Female

DRUGS (3)
  1. ENBREL [Suspect]
     Indication: RHEUMATOID ARTHRITIS
     Route: 058
  2. LEFLUNOMIDE [Concomitant]
  3. METHADONE [Concomitant]

REACTIONS (22)
  - ABDOMINAL PAIN [None]
  - ARTHROPOD BITE [None]
  - BLOOD CHOLESTEROL INCREASED [None]
  - BRONCHITIS [None]
  - CHEST PAIN [None]
  - CONTUSION [None]
  - CYSTITIS [None]
  - FALL [None]
  - FINGER DEFORMITY [None]
  - FOOT DEFORMITY [None]
  - HEAD INJURY [None]
  - HEPATOMEGALY [None]
  - HERNIA [None]
  - IMPAIRED HEALING [None]
  - INJECTION SITE PAIN [None]
  - INJECTION SITE PRURITUS [None]
  - JOINT SWELLING [None]
  - LOWER RESPIRATORY TRACT INFECTION [None]
  - NEUROPATHY PERIPHERAL [None]
  - SINUSITIS [None]
  - UPPER RESPIRATORY TRACT INFECTION [None]
  - WHEEZING [None]
